FAERS Safety Report 8907362 (Version 1)
Quarter: 2012Q4

REPORT INFORMATION
  Report Type: 
  Country: US (occurrence: US)
  Receive Date: 20121114
  Receipt Date: 20121114
  Transmission Date: 20130627
  Serious: Yes (Hospitalization)
  Sender: FDA-Public Use
  Company Number: US-BAYER-2012-118052

PATIENT
  Age: 47 Year
  Sex: Female
  Weight: 104.7 kg

DRUGS (3)
  1. YAZ [Suspect]
  2. YASMIN [Suspect]
  3. LEXAPRO [Concomitant]
     Dosage: 20 mg, daily

REACTIONS (2)
  - Pulmonary embolism [None]
  - Deep vein thrombosis [None]
